FAERS Safety Report 20009624 (Version 1)
Quarter: 2021Q4

REPORT INFORMATION
  Report Type: Spontaneous
  Country: AU (occurrence: AU)
  Receive Date: 20211029
  Receipt Date: 20211029
  Transmission Date: 20220303
  Serious: Yes (Hospitalization, Other)
  Sender: FDA-Public Use
  Company Number: AU-BRISTOL-MYERS SQUIBB COMPANY-BMS-2021-063002

PATIENT
  Age: 80 Year
  Sex: Male
  Weight: 73 kg

DRUGS (6)
  1. ELIQUIS [Suspect]
     Active Substance: APIXABAN
     Indication: Deep vein thrombosis
     Dosage: 5 MILLIGRAM, BID
     Route: 065
     Dates: start: 2020
  2. ELIQUIS [Suspect]
     Active Substance: APIXABAN
     Indication: Pulmonary thrombosis
     Dosage: 2.5 MILLIGRAM, BID
     Route: 065
     Dates: start: 20201202
  3. ELIQUIS [Suspect]
     Active Substance: APIXABAN
     Indication: Transient ischaemic attack
     Dosage: 2.5 MILLIGRAM, QD
     Route: 065
     Dates: start: 20210304
  4. OSTEOVIT D [Concomitant]
     Indication: Product used for unknown indication
     Dosage: 7000 INTERNATIONAL UNIT, QWK
     Route: 065
  5. UNSPECIFIED INGREDIENT [Concomitant]
     Active Substance: UNSPECIFIED INGREDIENT
     Indication: Product used for unknown indication
     Dosage: UNK
     Route: 042
  6. ATENOLOL [Concomitant]
     Active Substance: ATENOLOL
     Indication: Blood pressure measurement
     Dosage: NOW ONLY ON A QUARTER OF A NOTEN
     Route: 065

REACTIONS (7)
  - Haematoma [Unknown]
  - Cataract [Unknown]
  - Dementia [Unknown]
  - Poor quality sleep [Unknown]
  - Kidney small [Unknown]
  - Intentional product use issue [Unknown]
  - Wrong technique in product usage process [Unknown]
